FAERS Safety Report 20603774 (Version 1)
Quarter: 2022Q1

REPORT INFORMATION
  Report Type: Spontaneous
  Country: US (occurrence: None)
  Receive Date: 20220316
  Receipt Date: 20220316
  Transmission Date: 20220423
  Serious: Yes (Hospitalization)
  Sender: FDA-Public Use
  Company Number: None

PATIENT
  Age: 58 Year
  Sex: Male
  Weight: 89 kg

DRUGS (1)
  1. LISINOPRIL [Suspect]
     Active Substance: LISINOPRIL
     Indication: Hypertension
     Dosage: FREQUENCY : AT BEDTIME;?
     Route: 048
     Dates: start: 20210818, end: 20211204

REACTIONS (3)
  - Lip swelling [None]
  - Throat tightness [None]
  - Angioedema [None]

NARRATIVE: CASE EVENT DATE: 20211203
